FAERS Safety Report 6967072-1 (Version None)
Quarter: 2010Q3

REPORT INFORMATION
  Report Type: 
  Country: None (occurrence: None)
  Receive Date: 20100907
  Receipt Date: 20100820
  Transmission Date: 20110219
  Serious: Yes (Hospitalization)
  Sender: FDA-Public Use
  Company Number: US-BAYER-201024926NA

PATIENT
  Age: 44 Year
  Sex: Female
  Weight: 60 kg

DRUGS (10)
  1. YAZ [Suspect]
     Indication: ORAL CONTRACEPTION
     Route: 048
     Dates: start: 20070904, end: 20080605
  2. HYDROCORTISONE [Concomitant]
  3. CYMBALTA [Concomitant]
  4. ALPRAZOLAM [Concomitant]
  5. ACETAMINOPHEN W/ PROPOXYPHENE HCL [Concomitant]
  6. SERTRALINE HYDROCHLORIDE [Concomitant]
  7. TRIAMCINOLONE [Concomitant]
  8. METHYLPREDNISOLONE [Concomitant]
  9. SERTRALINE HYDROCHLORIDE [Concomitant]
  10. EXCEDRIN (MIGRAINE) [Concomitant]

REACTIONS (6)
  - ABDOMINAL PAIN [None]
  - ABDOMINAL PAIN UPPER [None]
  - BILIARY DYSKINESIA [None]
  - DYSPHAGIA [None]
  - GALLBLADDER CHOLESTEROLOSIS [None]
  - GASTROOESOPHAGEAL REFLUX DISEASE [None]
